FAERS Safety Report 4806385-6 (Version None)
Quarter: 2005Q4

REPORT INFORMATION
  Report Type: 
  Country: None (occurrence: None)
  Receive Date: 20051019
  Receipt Date: 20051004
  Transmission Date: 20060501
  Serious: Yes (Hospitalization, Other)
  Sender: FDA-Public Use
  Company Number: USA0510109947

PATIENT
  Age: 72 Year
  Sex: Male

DRUGS (8)
  1. HUMULIN 70/30 [Suspect]
     Indication: DIABETES MELLITUS
     Dosage: 35 U/2 DAY
  2. INH [Concomitant]
  3. CYTOXAN [Concomitant]
  4. PREDNISONE [Concomitant]
  5. AVANDIA [Concomitant]
  6. GLYBURIDE [Concomitant]
  7. CARDURA [Concomitant]
  8. DIGOXIN [Concomitant]

REACTIONS (19)
  - ABASIA [None]
  - ANAEMIA [None]
  - ANOREXIA [None]
  - ASTHENIA [None]
  - ATRIAL FIBRILLATION [None]
  - BLOOD GLUCOSE INCREASED [None]
  - DRUG TOXICITY [None]
  - DYSPNOEA [None]
  - FALSE POSITIVE LABORATORY RESULT [None]
  - HEADACHE [None]
  - HEPATOTOXICITY [None]
  - INSULIN RESISTANCE [None]
  - PNEUMONIA [None]
  - POSTNASAL DRIP [None]
  - PRODUCTIVE COUGH [None]
  - PROTEIN URINE PRESENT [None]
  - SYNCOPE [None]
  - VOMITING [None]
  - WEGENER'S GRANULOMATOSIS [None]
